FAERS Safety Report 15339472 (Version 2)
Quarter: 2018Q3

REPORT INFORMATION
  Report Type: Spontaneous
  Country: PY (occurrence: PY)
  Receive Date: 20180831
  Receipt Date: 20180911
  Transmission Date: 20181010
  Serious: Yes (Death, Hospitalization)
  Sender: FDA-Public Use
  Company Number: PHHY2018PY082627

PATIENT
  Sex: Female

DRUGS (1)
  1. GLIVEC [Suspect]
     Active Substance: IMATINIB MESYLATE
     Indication: CHRONIC MYELOID LEUKAEMIA
     Dosage: 400 MG, UNK
     Route: 065
     Dates: start: 20180405, end: 20180817

REACTIONS (11)
  - Sepsis [Fatal]
  - Leukocytosis [Unknown]
  - Splenomegaly [Unknown]
  - Coma [Fatal]
  - Multiple organ dysfunction syndrome [Fatal]
  - Neutrophil toxic granulation present [Unknown]
  - Thrombocytopenia [Unknown]
  - Depressed level of consciousness [Fatal]
  - Neutrophilia [Unknown]
  - Anaemia [Unknown]
  - Renal failure [Unknown]
